FAERS Safety Report 9598644 (Version 1)
Quarter: 2013Q4

REPORT INFORMATION
  Report Type: Spontaneous
  Country: US (occurrence: US)
  Receive Date: 20131004
  Receipt Date: 20131004
  Transmission Date: 20140711
  Serious: No
  Sender: FDA-Public Use
  Company Number: US-AMGEN-USASP2013024727

PATIENT
  Age: 71 Year
  Sex: Female

DRUGS (2)
  1. ENBREL [Suspect]
     Indication: RHEUMATOID ARTHRITIS
     Dosage: 50 MG, QWK
     Dates: start: 20050101
  2. METHOTREXATE [Concomitant]
     Dosage: UNK

REACTIONS (3)
  - Contusion [Not Recovered/Not Resolved]
  - Fall [Unknown]
  - Non-cardiac chest pain [Not Recovered/Not Resolved]
